FAERS Safety Report 8790525 (Version 1)
Quarter: 2012Q4

REPORT INFORMATION
  Report Type: Spontaneous
  Country: US (occurrence: None)
  Receive Date: 20120912
  Receipt Date: 20120912
  Transmission Date: 20130627
  Serious: Yes (Disabling, Other)
  Sender: FDA-Public Use
  Company Number: None

PATIENT
  Age: 57 Year
  Sex: Female
  Weight: 77.11 kg

DRUGS (2)
  1. LEVOFLOXACIN [Suspect]
     Indication: POSTOPERATIVE CARE
     Route: 048
     Dates: start: 20120823, end: 20120829
  2. LEVOFLOXACIN [Suspect]
     Indication: SEPTOPLASTY
     Route: 048
     Dates: start: 20120823, end: 20120829

REACTIONS (11)
  - Influenza like illness [None]
  - Arthralgia [None]
  - Pain in extremity [None]
  - Pain in extremity [None]
  - Arthralgia [None]
  - Pain in extremity [None]
  - Joint crepitation [None]
  - Oedema peripheral [None]
  - Depression [None]
  - Insomnia [None]
  - Hypokinesia [None]
